FAERS Safety Report 15754140 (Version 1)
Quarter: 2018Q4

REPORT INFORMATION
  Report Type: Spontaneous
  Country: IT (occurrence: IN)
  Receive Date: 20181223
  Receipt Date: 20181223
  Transmission Date: 20190205
  Serious: Yes (Other)
  Sender: FDA-Public Use
  Company Number: IN-INGENUS PHARMACEUTICALS NJ, LLC-ING201812-001190

PATIENT
  Age: 57 Year
  Sex: Male

DRUGS (4)
  1. CARISOPRODOL, ASPIRIN AND CODEINE PHOSPHATE [Suspect]
     Active Substance: ASPIRIN\CARISOPRODOL\CODEINE PHOSPHATE
  2. TICAGRELOR. [Suspect]
     Active Substance: TICAGRELOR
  3. CARISOPRODOL, ASPIRIN AND CODEINE PHOSPHATE [Suspect]
     Active Substance: ASPIRIN\CARISOPRODOL\CODEINE PHOSPHATE
  4. CLOPIDOGREL [Concomitant]
     Active Substance: CLOPIDOGREL BISULFATE

REACTIONS (4)
  - Peritoneal haemorrhage [Recovered/Resolved]
  - Hypotension [Recovered/Resolved]
  - Splenic haematoma [Not Recovered/Not Resolved]
  - Splenic rupture [Not Recovered/Not Resolved]
